FAERS Safety Report 7526331-4 (Version None)
Quarter: 2011Q2

REPORT INFORMATION
  Report Type: 
  Country: None (occurrence: None)
  Receive Date: 20110606
  Receipt Date: 20110525
  Transmission Date: 20111010
  Serious: Yes (Hospitalization, Disabling)
  Sender: FDA-Public Use
  Company Number: JP-ELI_LILLY_AND_COMPANY-JP201105007792

PATIENT
  Age: 67 Year
  Sex: Female
  Weight: 49 kg

DRUGS (13)
  1. TADALAFIL [Suspect]
     Indication: PULMONARY ARTERIAL HYPERTENSION
     Dosage: 20 MG, UNK
     Route: 048
     Dates: start: 20100720
  2. CALBLOCK [Concomitant]
     Dosage: 16 MG, UNK
     Route: 048
  3. LEVEMIR [Concomitant]
     Route: 058
  4. TADALAFIL [Suspect]
     Dosage: 40 MG, UNK
     Route: 048
     Dates: start: 20100729
  5. WARFARIN SODIUM [Concomitant]
     Dosage: 3 MG, UNK
     Route: 048
  6. LASIX [Concomitant]
     Dosage: 40 MG, UNK
     Route: 048
  7. NOVORAPID [Concomitant]
     Dosage: 3 IU, UNK
     Route: 058
  8. ALDACTONE [Concomitant]
     Dosage: 25 MG, UNK
     Route: 048
  9. TELMISARTAN [Concomitant]
     Dosage: 1 DF, UNK
     Route: 048
  10. AMARYL [Concomitant]
     Dosage: 2 MG, UNK
     Route: 048
  11. TADALAFIL [Suspect]
     Dosage: 20 MG, UNK
     Route: 048
     Dates: start: 20101012
  12. PURSENNID [Concomitant]
     Dosage: 12 MG, UNK
     Route: 048
  13. DIGOXIN [Concomitant]
     Dosage: 0.125 MG, UNK
     Route: 048

REACTIONS (1)
  - LIVER DISORDER [None]
